FAERS Safety Report 10087007 (Version 1)
Quarter: 2014Q2

REPORT INFORMATION
  Report Type: Report from Study
  Country: AR (occurrence: AR)
  Receive Date: 20140418
  Receipt Date: 20140418
  Transmission Date: 20141212
  Serious: Yes (Hospitalization, Other)
  Sender: FDA-Public Use
  Company Number: PHHO2014AR005726

PATIENT
  Sex: 0

DRUGS (7)
  1. BLINDED ENALAPRIL [Suspect]
     Indication: CARDIAC FAILURE CHRONIC
     Dosage: DOUBLE BLINDED
     Route: 048
     Dates: start: 20131226, end: 20140414
  2. BLINDED LCZ696 [Suspect]
     Indication: CARDIAC FAILURE CHRONIC
     Dosage: DOUBLE BLINDED
     Route: 048
     Dates: start: 20131226, end: 20140414
  3. BLINDED NO TREATMENT RECEIVED [Suspect]
     Indication: CARDIAC FAILURE CHRONIC
     Dosage: DOUBLE BLINDED
     Route: 048
     Dates: start: 20131226, end: 20140414
  4. CARVEDILOL [Concomitant]
     Indication: CARDIAC FAILURE
     Dosage: 6.25, BID
     Route: 048
  5. SPIRONOLACTONE [Concomitant]
     Indication: CARDIAC FAILURE
     Dosage: 25, QD
     Route: 048
  6. ASPIRINE [Concomitant]
     Indication: CORONARY ARTERY DISEASE
     Dosage: 100, QD
     Route: 048
  7. SIMVASTATINE [Concomitant]
     Indication: CORONARY ARTERY DISEASE
     Dosage: 10, QD
     Route: 048

REACTIONS (1)
  - Myocardial ischaemia [Not Recovered/Not Resolved]
